FAERS Safety Report 12914839 (Version 1)
Quarter: 2016Q4

REPORT INFORMATION
  Report Type: Spontaneous
  Country: US (occurrence: US)
  Receive Date: 20161106
  Receipt Date: 20161106
  Transmission Date: 20170207
  Serious: No
  Sender: FDA-Public Use
  Company Number: US-RELYPSA-RLY2016002099

PATIENT
  Sex: Female

DRUGS (21)
  1. VELTASSA [Suspect]
     Active Substance: PATIROMER
     Indication: HYPERKALAEMIA
     Dosage: 8.4 G, QD
     Route: 048
  2. ZETIA [Concomitant]
     Active Substance: EZETIMIBE
  3. RESTORIL [Concomitant]
     Active Substance: TEMAZEPAM
  4. MULTIVITAMINS [Concomitant]
     Active Substance: VITAMINS
  5. LASIX [Concomitant]
     Active Substance: FUROSEMIDE
  6. COLACE [Concomitant]
     Active Substance: DOCUSATE SODIUM
  7. PLAVIX [Concomitant]
     Active Substance: CLOPIDOGREL BISULFATE
  8. CENTRUM SILVER                     /02363801/ [Concomitant]
     Active Substance: MINERALS\VITAMINS
  9. ASPIRIN                            /00002701/ [Concomitant]
     Active Substance: ASPIRIN
  10. VITAMIN E                          /00110501/ [Concomitant]
     Active Substance: TOCOPHEROL
  11. TUMS                               /00193601/ [Concomitant]
     Active Substance: CALCIUM CARBONATE\MAGNESIUM CARBONATE\MAGNESIUM TRISILICATE
  12. PINDOLOL. [Concomitant]
     Active Substance: PINDOLOL
  13. FIBERCON [Concomitant]
     Active Substance: CALCIUM POLYCARBOPHIL
  14. CALCIUM 600 PLUS VITAMIN D3 [Concomitant]
  15. OSTEO-PORETICAL [Concomitant]
  16. COLCHICINE. [Concomitant]
     Active Substance: COLCHICINE
  17. SUPER B COMPLEX WITH C [Concomitant]
  18. PRILOSEC [Concomitant]
     Active Substance: OMEPRAZOLE MAGNESIUM
  19. PRAVACHOL [Concomitant]
     Active Substance: PRAVASTATIN SODIUM
  20. MAGNESIUM ASPARTATE [Concomitant]
     Active Substance: MAGNESIUM ASPARTATE
  21. CLONIDINE HCL [Concomitant]
     Active Substance: CLONIDINE HYDROCHLORIDE

REACTIONS (1)
  - Diarrhoea [Not Recovered/Not Resolved]
